FAERS Safety Report 15920536 (Version 1)
Quarter: 2019Q1

REPORT INFORMATION
  Report Type: Spontaneous
  Country: IT (occurrence: IT)
  Receive Date: 20190205
  Receipt Date: 20190205
  Transmission Date: 20190417
  Serious: Yes (Disabling)
  Sender: FDA-Public Use
  Company Number: IT-MYLANLABS-2019M1009815

PATIENT
  Age: 49 Year
  Sex: Male
  Weight: 89 kg

DRUGS (4)
  1. ACTIDOX [Suspect]
     Active Substance: DOXYCYCLINE
     Indication: ROSACEA
     Dosage: 100 MILLIGRAM, QD (100 MILLIGRAM, ONCE A DAY)
     Route: 048
     Dates: start: 20180502, end: 20180503
  2. GLUCOSAMINE [Concomitant]
     Active Substance: GLUCOSAMINE
     Indication: OSTEOARTHRITIS
     Dosage: 1 DOSAGE FORM
     Route: 048
  3. RODERMIL [Concomitant]
     Active Substance: METRONIDAZOLE
     Indication: ROSACEA
     Dosage: 1 DOSAGE FORM, QD (1 DOSAGE FORM, ONCE A DAY)
     Route: 003
  4. VALACICLOVIR [Suspect]
     Active Substance: VALACYCLOVIR HYDROCHLORIDE
     Indication: ROSACEA
     Dosage: 2000 MILLIGRAM, QD (1000 MILLIGRAM, TWO TIMES A DAY)
     Route: 048
     Dates: start: 20180502, end: 20180503

REACTIONS (3)
  - Diarrhoea [Recovering/Resolving]
  - Feeling hot [Recovering/Resolving]
  - Abdominal pain [Recovering/Resolving]

NARRATIVE: CASE EVENT DATE: 20180502
